FAERS Safety Report 5285930-3 (Version None)
Quarter: 2007Q2

REPORT INFORMATION
  Report Type: 
  Country: None (occurrence: None)
  Receive Date: 20070404
  Receipt Date: 20070330
  Transmission Date: 20071010
  Serious: Yes (Death, Hospitalization)
  Sender: FDA-Public Use
  Company Number: PHBS2005NZ03421

PATIENT
  Age: 41 Year
  Sex: Female

DRUGS (3)
  1. AMITRIPTYLINE HCL [Concomitant]
     Dosage: 10 MG/D
  2. BENZTROPINE MESYLATE [Concomitant]
     Dosage: 2 MG/D
  3. CLOZARIL [Suspect]
     Indication: SCHIZOPHRENIA
     Dosage: 550 MG/D
     Route: 048
     Dates: start: 19981125, end: 20050303

REACTIONS (7)
  - ASPIRATION [None]
  - CONSTIPATION [None]
  - FAECALOMA [None]
  - INTESTINAL ISCHAEMIA [None]
  - INTESTINAL RESECTION [None]
  - OBSTRUCTIVE AIRWAYS DISORDER [None]
  - PULMONARY EMBOLISM [None]
